FAERS Safety Report 5000675-2 (Version None)
Quarter: 2006Q2

REPORT INFORMATION
  Report Type: 
  Country: None (occurrence: None)
  Receive Date: 20060512
  Receipt Date: 20060504
  Transmission Date: 20061013
  Serious: Yes (Hospitalization)
  Sender: FDA-Public Use
  Company Number: US-JNJFOC-20060501229

PATIENT
  Sex: Male

DRUGS (14)
  1. REMICADE [Suspect]
     Indication: RHEUMATOID ARTHRITIS
     Route: 042
  2. ALBUTEROL SULFATE AUTOHALER [Concomitant]
     Route: 055
  3. ARAVA [Concomitant]
  4. CELEBREX [Concomitant]
  5. HYDROCHLOROTHIAZIDE [Concomitant]
  6. NEURONTIN [Concomitant]
  7. PREDNISONE TAB [Concomitant]
  8. LEVOTHYROXINE SODIUM [Concomitant]
  9. VICODIN [Concomitant]
  10. VICODIN [Concomitant]
  11. ADVAIR DISKUS 100/50 [Concomitant]
  12. ADVAIR DISKUS 100/50 [Concomitant]
  13. SINGULAIR [Concomitant]
  14. FLOMAX [Concomitant]

REACTIONS (1)
  - COCCIDIOIDOMYCOSIS [None]
